FAERS Safety Report 7623785-X (Version None)
Quarter: 2011Q3

REPORT INFORMATION
  Report Type: 
  Country: None (occurrence: None)
  Receive Date: 20110720
  Receipt Date: 20110714
  Transmission Date: 20111222
  Serious: Yes (Hospitalization)
  Sender: FDA-Public Use
  Company Number: US-GLAXOSMITHKLINE-A0937229A

PATIENT
  Sex: Male

DRUGS (5)
  1. TOPROL-XL [Concomitant]
  2. ACCUPRIL [Concomitant]
  3. ALLI [Suspect]
     Indication: PRODUCT USED FOR UNKNOWN INDICATION
     Route: 065
     Dates: start: 20080501, end: 20090701
  4. POTASSIUM CHLORIDE [Concomitant]
     Dosage: 20MEQ PER DAY
  5. FAMOTIDINE [Concomitant]

REACTIONS (11)
  - SEPSIS [None]
  - CHOLESTASIS [None]
  - HEPATITIS D [None]
  - TROPONIN INCREASED [None]
  - SUPRAVENTRICULAR TACHYCARDIA [None]
  - MULTI-ORGAN FAILURE [None]
  - ATRIAL FIBRILLATION [None]
  - PNEUMONIA [None]
  - ACUTE HEPATIC FAILURE [None]
  - CARDIAC FAILURE CONGESTIVE [None]
  - RENAL FAILURE ACUTE [None]
